FAERS Safety Report 5895125-8 (Version None)
Quarter: 2008Q3

REPORT INFORMATION
  Report Type: 
  Country: None (occurrence: None)
  Receive Date: 20080924
  Receipt Date: 20080911
  Transmission Date: 20090109
  Serious: Yes (Disabling)
  Sender: FDA-Public Use
  Company Number: GB-PFIZER INC-2008077412

PATIENT
  Sex: Male

DRUGS (6)
  1. VIBRAMYCIN [Suspect]
  2. AMOXICILLIN [Concomitant]
  3. FLOXACILLIN SODIUM [Concomitant]
  4. CEFALEXIN [Concomitant]
  5. AMOXICILLIN + CLAVULANATE POTASSIUM [Concomitant]
  6. METRONIDAZOLE [Concomitant]

REACTIONS (1)
  - ARTHRALGIA [None]
